FAERS Safety Report 23719404 (Version 2)
Quarter: 2024Q3

REPORT INFORMATION
  Report Type: Spontaneous
  Country: FR (occurrence: FR)
  Receive Date: 20240408
  Receipt Date: 20240708
  Transmission Date: 20241017
  Serious: Yes (Death, Other)
  Sender: ALEXION PHARMACEUTICALS
  Company Number: FR-ALXN-202403EEA002128FR

PATIENT
  Age: 23 Year
  Sex: Male
  Weight: 86 kg

DRUGS (1)
  1. SOLIRIS [Suspect]
     Active Substance: ECULIZUMAB
     Indication: Delayed haemolytic transfusion reaction
     Dosage: 900 MILLIGRAM, SINGLE
     Route: 065
     Dates: start: 20240326, end: 20240326

REACTIONS (3)
  - Multiple organ dysfunction syndrome [Fatal]
  - Delayed haemolytic transfusion reaction [Fatal]
  - Off label use [Unknown]

NARRATIVE: CASE EVENT DATE: 20240326
